FAERS Safety Report 8630987 (Version 2)
Quarter: 2013Q1

REPORT INFORMATION
  Report Type: Spontaneous
  Country: DK (occurrence: DK)
  Receive Date: 20120622
  Receipt Date: 20130215
  Transmission Date: 20140127
  Serious: Yes (Other)
  Sender: FDA-Public Use
  Company Number: PHHY2012DK052058

PATIENT
  Age: 28 Year
  Sex: Female
  Weight: 60 kg

DRUGS (3)
  1. MASULIN [Suspect]
     Indication: POLLAKIURIA
     Dosage: 0.4 MG
     Route: 048
     Dates: start: 20091111, end: 20111215
  2. NOVYNETTE [Interacting]
     Indication: CONTRACEPTION
     Route: 048
     Dates: end: 20111215
  3. VESICARE [Interacting]
     Indication: POLLAKIURIA
     Dosage: 5 MG, QD
     Route: 048
     Dates: start: 20091111, end: 20111215

REACTIONS (3)
  - Pregnancy on oral contraceptive [Not Recovered/Not Resolved]
  - Drug interaction [Unknown]
  - Maternal exposure during pregnancy [Not Recovered/Not Resolved]
